FAERS Safety Report 4630275-5 (Version None)
Quarter: 2005Q2

REPORT INFORMATION
  Report Type: 
  Country: None (occurrence: None)
  Receive Date: 20050405
  Receipt Date: 20050405
  Transmission Date: 20051028
  Serious: No
  Sender: FDA-Public Use
  Company Number: None

PATIENT
  Sex: Female
  Weight: 55 kg

DRUGS (1)
  1. INTERFERON-ALPHA [Suspect]
     Dosage: 9.0 MU SC 3X/WEEK. CYCLE = 4 WEEKS
     Route: 058
     Dates: start: 20050110

REACTIONS (7)
  - ASTHENIA [None]
  - BACK PAIN [None]
  - MUSCULAR WEAKNESS [None]
  - NAUSEA [None]
  - NEOPLASM PROGRESSION [None]
  - PAIN [None]
  - SPINAL CORD COMPRESSION [None]
